FAERS Safety Report 10021525 (Version 2)
Quarter: 2014Q2

REPORT INFORMATION
  Report Type: Report from Study
  Country: JP (occurrence: JP)
  Receive Date: 20140319
  Receipt Date: 20140428
  Transmission Date: 20141212
  Serious: Yes (Other)
  Sender: FDA-Public Use
  Company Number: JP-SA-2014SA032083

PATIENT
  Age: 54 Year
  Sex: Female
  Weight: 69.5 kg

DRUGS (14)
  1. THYMOGLOBULINE [Suspect]
     Indication: KIDNEY TRANSPLANT REJECTION
     Route: 042
     Dates: start: 20130626, end: 20130702
  2. SOL-MELCORT [Concomitant]
     Indication: PROPHYLAXIS
     Dosage: 125-20MG/DAY
     Route: 051
     Dates: start: 20130626, end: 20130630
  3. VENA [Concomitant]
     Indication: PROPHYLAXIS
     Dosage: 20 OR 30 MG/DAY
     Route: 048
     Dates: start: 20130626, end: 20130629
  4. CALONAL [Concomitant]
     Indication: PROPHYLAXIS
     Route: 048
     Dates: start: 20130627, end: 20130630
  5. CICLOSPORIN [Concomitant]
     Indication: IMMUNOSUPPRESSANT DRUG THERAPY
     Route: 048
     Dates: start: 20130626
  6. MYCOPHENOLATE MOFETIL [Concomitant]
     Indication: IMMUNOSUPPRESSANT DRUG THERAPY
     Dosage: 1000-500 MG/DAY
     Route: 048
     Dates: start: 20130626
  7. FEBURIC [Concomitant]
     Indication: HYPERURICAEMIA
     Route: 048
     Dates: start: 20130626
  8. LOCHOL [Concomitant]
     Indication: HYPERLIPIDAEMIA
     Route: 048
     Dates: start: 20130626
  9. CANDESARTAN [Concomitant]
     Indication: HYPERTENSION
     Route: 048
     Dates: start: 20130626, end: 20131226
  10. LASIX [Concomitant]
     Indication: OEDEMA
     Route: 048
     Dates: start: 20130626
  11. SELBEX [Concomitant]
     Indication: GASTRITIS
     Route: 048
     Dates: start: 20130626
  12. NOVORAPID [Concomitant]
     Dosage: 30-52 IU/DAY
     Route: 051
     Dates: start: 20130626
  13. LANTUS [Concomitant]
     Dosage: 10-16 IU/DAY
     Route: 058
     Dates: start: 20130626
  14. FRANDOL [Concomitant]
     Indication: ANGINA PECTORIS
     Dosage: FRANDOL TAPE
     Route: 062
     Dates: start: 20130626, end: 20131226

REACTIONS (4)
  - Hepatic function abnormal [Recovering/Resolving]
  - Abdominal pain [Recovering/Resolving]
  - Dyspnoea [Recovering/Resolving]
  - Pyrexia [Recovering/Resolving]
